FAERS Safety Report 19172600 (Version 1)
Quarter: 2021Q2

REPORT INFORMATION
  Report Type: Spontaneous
  Country: US (occurrence: US)
  Receive Date: 20210423
  Receipt Date: 20210423
  Transmission Date: 20210717
  Serious: No
  Sender: FDA-Public Use
  Company Number: US-AMGEN-USASP2021061975

PATIENT
  Age: 35 Year
  Sex: Male

DRUGS (2)
  1. CLOBETASOL [Concomitant]
     Active Substance: CLOBETASOL
     Dosage: UNK
  2. OTEZLA [Suspect]
     Active Substance: APREMILAST
     Indication: PSORIASIS
     Dosage: UNK (STARTER PACK AS DIRECTED)
     Route: 048
     Dates: start: 20210112

REACTIONS (2)
  - Product supply issue [Unknown]
  - Psoriasis [Not Recovered/Not Resolved]

NARRATIVE: CASE EVENT DATE: 202102
